FAERS Safety Report 8848032 (Version 1)
Quarter: 2012Q4

REPORT INFORMATION
  Report Type: 
  Country: US (occurrence: US)
  Receive Date: 20121018
  Receipt Date: 20121018
  Transmission Date: 20130627
  Serious: Yes (Other)
  Sender: FDA-Public Use
  Company Number: US-PFIZER INC-2012257233

PATIENT
  Age: 83 Year
  Sex: Male
  Weight: 79.82 kg

DRUGS (10)
  1. LYRICA [Suspect]
     Indication: HYPOAESTHESIA
     Dosage: 25 mg, 2x/day
     Dates: end: 2012
  2. LYRICA [Suspect]
     Dosage: 50 mg, 2x/day
     Dates: start: 2012, end: 2012
  3. LYRICA [Suspect]
     Dosage: 50mg in morning and 75mg at night
     Dates: start: 2012
  4. LYRICA [Suspect]
     Dosage: UNK, 2x/day
  5. NEXIUM [Concomitant]
     Indication: GASTROOESOPHAGEAL REFLUX DISEASE
     Dosage: UNK
  6. CELEXA [Concomitant]
     Indication: DEPRESSION
     Dosage: UNK
  7. TOPROL XL [Concomitant]
     Dosage: UNK
  8. LOSARTAN [Concomitant]
     Dosage: UNK
  9. NORVASC [Concomitant]
     Dosage: UNK
  10. MELATONIN [Concomitant]
     Dosage: 3 mg, UNK

REACTIONS (6)
  - Herpes zoster ophthalmic [Unknown]
  - Herpes zoster [Unknown]
  - Transient ischaemic attack [Unknown]
  - Headache [Unknown]
  - Eye pain [Unknown]
  - Bone pain [Unknown]
